FAERS Safety Report 16198297 (Version 3)
Quarter: 2019Q4

REPORT INFORMATION
  Report Type: Report from Study
  Country: RS (occurrence: RS)
  Receive Date: 20190415
  Receipt Date: 20191203
  Transmission Date: 20200122
  Serious: Yes (Other)
  Sender: FDA-Public Use
  Company Number: RS-TEVA-2019-RS-1038489

PATIENT
  Sex: Female

DRUGS (2)
  1. CISPLATIN. [Suspect]
     Active Substance: CISPLATIN
     Indication: ENDOMETRIAL ADENOCARCINOMA
     Dosage: EVERY 3 WEEKS
     Route: 065
  2. DOXORUBICIN [Suspect]
     Active Substance: DOXORUBICIN
     Indication: ENDOMETRIAL ADENOCARCINOMA
     Dosage: EVERY 3 WEEKS
     Route: 065

REACTIONS (1)
  - Febrile neutropenia [Unknown]
